FAERS Safety Report 15974028 (Version 1)
Quarter: 2019Q1

REPORT INFORMATION
  Report Type: Spontaneous
  Country: FR (occurrence: FR)
  Receive Date: 20190217
  Receipt Date: 20190217
  Transmission Date: 20190418
  Serious: Yes (Other)
  Sender: FDA-Public Use
  Company Number: FR-TEVA-2019-FR-1012117

PATIENT
  Age: 44 Year
  Sex: Male

DRUGS (4)
  1. OXALIPLATINE [Suspect]
     Active Substance: OXALIPLATIN
     Indication: RECTAL ADENOCARCINOMA
     Dosage: NOT INFORMED
     Route: 042
     Dates: start: 20181219, end: 20190107
  2. FLUOROURACILE [Suspect]
     Active Substance: FLUOROURACIL
     Indication: RECTAL ADENOCARCINOMA
     Dosage: NOT INFORMED
     Route: 042
     Dates: start: 20181219, end: 20190107
  3. INNOHEP [Suspect]
     Active Substance: TINZAPARIN SODIUM
     Indication: SUBCLAVIAN VEIN THROMBOSIS
     Route: 058
     Dates: start: 20190107, end: 20190116
  4. IRINOTECAN [Suspect]
     Active Substance: IRINOTECAN
     Indication: RECTAL ADENOCARCINOMA
     Dosage: NOT INFORMED
     Route: 042
     Dates: start: 20181219, end: 20190107

REACTIONS (1)
  - Hypertransaminasaemia [Not Recovered/Not Resolved]

NARRATIVE: CASE EVENT DATE: 20190114
